FAERS Safety Report 19527733 (Version 3)
Quarter: 2021Q3

REPORT INFORMATION
  Report Type: Spontaneous
  Country: DE (occurrence: DE)
  Receive Date: 20210713
  Receipt Date: 20210825
  Transmission Date: 20211014
  Serious: Yes (Other)
  Sender: FDA-Public Use
  Company Number: NVSC2021DE148161

PATIENT
  Age: 79 Year
  Sex: Female
  Weight: 60 kg

DRUGS (2)
  1. BEOVU [Suspect]
     Active Substance: BROLUCIZUMAB-DBLL
     Indication: NEOVASCULAR AGE-RELATED MACULAR DEGENERATION
     Dosage: 50 UL, Q4W (3 X Q4W THEN 6 WEEK INTERVAL)
     Route: 031
     Dates: start: 20210218
  2. BEOVU [Suspect]
     Active Substance: BROLUCIZUMAB-DBLL
     Dosage: 50 UL, Q4W (3 X Q4W THEN 6 WEEK INTERVAL)
     Route: 031
     Dates: start: 20210610

REACTIONS (2)
  - Retinal artery occlusion [Recovered/Resolved with Sequelae]
  - Visual field defect [Not Recovered/Not Resolved]

NARRATIVE: CASE EVENT DATE: 20210612
